FAERS Safety Report 10159638 (Version 1)
Quarter: 2014Q2

REPORT INFORMATION
  Report Type: Spontaneous
  Country: US (occurrence: US)
  Receive Date: 20140508
  Receipt Date: 20140508
  Transmission Date: 20141212
  Serious: No
  Sender: FDA-Public Use
  Company Number: US-GLAXOSMITHKLINE-A1018178A

PATIENT
  Age: 51 Year
  Sex: Female

DRUGS (5)
  1. TYKERB [Suspect]
     Indication: PRODUCT USED FOR UNKNOWN INDICATION
     Dosage: 1250MG PER DAY
     Route: 048
     Dates: start: 20130307
  2. VALTREX [Concomitant]
  3. NEURONTIN [Concomitant]
  4. FEMARA [Concomitant]
  5. MVI [Concomitant]

REACTIONS (6)
  - Nausea [Unknown]
  - Diarrhoea [Unknown]
  - Decreased appetite [Unknown]
  - Asthenia [Unknown]
  - Ocular hyperaemia [Unknown]
  - Stomatitis [Unknown]
